FAERS Safety Report 6687338-2 (Version None)
Quarter: 2010Q2

REPORT INFORMATION
  Report Type: 
  Country: None (occurrence: None)
  Receive Date: 20100419
  Receipt Date: 20100406
  Transmission Date: 20101027
  Serious: Yes (Other)
  Sender: FDA-Public Use
  Company Number: CA-ELI_LILLY_AND_COMPANY-CA201004002098

PATIENT
  Age: 73 Year
  Sex: Male

DRUGS (1)
  1. CYMBALTA [Suspect]
     Indication: NEURALGIA
     Dosage: 60 MG, DAILY (1/D)
     Route: 048

REACTIONS (1)
  - DIALYSIS [None]
